FAERS Safety Report 8200497-5 (Version None)
Quarter: 2012Q1

REPORT INFORMATION
  Report Type: 
  Country: None (occurrence: None)
  Receive Date: 20120309
  Receipt Date: 20120309
  Transmission Date: 20120608
  Serious: Yes (Hospitalization)
  Sender: FDA-Public Use
  Company Number: None

PATIENT
  Age: 67 Year
  Sex: Male
  Weight: 95.9 kg

DRUGS (1)
  1. METHOCARBAMOL [Suspect]
     Indication: MYALGIA
     Dosage: MG PO
     Route: 048
     Dates: start: 20120211, end: 20120213

REACTIONS (4)
  - HEAD INJURY [None]
  - ANGIOEDEMA [None]
  - GAIT DISTURBANCE [None]
  - HEADACHE [None]
